FAERS Safety Report 5913566-7 (Version None)
Quarter: 2008Q4

REPORT INFORMATION
  Report Type: 
  Country: None (occurrence: None)
  Receive Date: 20081006
  Receipt Date: 20080929
  Transmission Date: 20090506
  Serious: Yes (Death, Hospitalization)
  Sender: FDA-Public Use
  Company Number: TAP2008Q00741

PATIENT
  Age: 54 Year
  Sex: Male
  Weight: 97.1 kg

DRUGS (8)
  1. PREVPAC [Suspect]
     Indication: GASTRITIS
     Dosage: 1 CARD (0.5 CARD, 2 IN 1 D) ,PER ORAL
     Route: 048
     Dates: start: 20080508, end: 20080501
  2. PREVPAC [Suspect]
     Indication: GASTROOESOPHAGEAL REFLUX DISEASE
     Dosage: 1 CARD (0.5 CARD, 2 IN 1 D) ,PER ORAL
     Route: 048
     Dates: start: 20080508, end: 20080501
  3. PREVPAC [Suspect]
     Indication: HELICOBACTER INFECTION
     Dosage: 1 CARD (0.5 CARD, 2 IN 1 D) ,PER ORAL
     Route: 048
     Dates: start: 20080508, end: 20080501
  4. LANTUS [Concomitant]
  5. NOVOLOG [Concomitant]
  6. LOTENSIN (CAPTOPRIL) [Concomitant]
  7. OXYCODONE HCL [Concomitant]
  8. DUONEB [Concomitant]

REACTIONS (11)
  - CHILLS [None]
  - CHOLANGITIS [None]
  - DIARRHOEA [None]
  - DYSGEUSIA [None]
  - HAEMATOCHEZIA [None]
  - HEPATIC NEOPLASM MALIGNANT [None]
  - HYPERHIDROSIS [None]
  - INAPPROPRIATE SCHEDULE OF DRUG ADMINISTRATION [None]
  - JAUNDICE CHOLESTATIC [None]
  - TREATMENT NONCOMPLIANCE [None]
  - WEIGHT DECREASED [None]
